FAERS Safety Report 8494775-2 (Version None)
Quarter: 2012Q3

REPORT INFORMATION
  Report Type: 
  Country: None (occurrence: None)
  Receive Date: 20120709
  Receipt Date: 20120628
  Transmission Date: 20120928
  Serious: Yes (Hospitalization)
  Sender: FDA-Public Use
  Company Number: FR-SANOFI-AVENTIS-2011SA036923

PATIENT
  Age: 83 Year
  Sex: Female

DRUGS (10)
  1. ACETAMINOPHEN [Concomitant]
     Route: 065
     Dates: end: 20110526
  2. ESOMEPRAZOLE [Concomitant]
     Route: 065
     Dates: end: 20110526
  3. AUGMENTIN '125' [Suspect]
     Route: 065
     Dates: start: 20110523, end: 20110526
  4. IMOVANE [Concomitant]
     Route: 065
     Dates: end: 20110526
  5. LEVOTHYROXINE SODIUM [Concomitant]
     Route: 065
  6. PAROXETINE HCL [Concomitant]
     Route: 065
     Dates: end: 20110526
  7. LASIX [Suspect]
     Route: 065
  8. SOLU-MEDROL [Suspect]
     Route: 042
     Dates: start: 20110525, end: 20110526
  9. GLUCOPHAGE [Concomitant]
     Route: 065
     Dates: end: 20110526
  10. OMEPRAZOLE [Concomitant]
     Route: 065

REACTIONS (1)
  - CYTOLYTIC HEPATITIS [None]
